FAERS Safety Report 5336377-2 (Version None)
Quarter: 2007Q2

REPORT INFORMATION
  Report Type: 
  Country: None (occurrence: None)
  Receive Date: 20070523
  Receipt Date: 20070516
  Transmission Date: 20071010
  Serious: Yes (Death)
  Sender: FDA-Public Use
  Company Number: 2007BI001216

PATIENT
  Age: 46 Year
  Sex: Male
  Weight: 74.8435 kg

DRUGS (10)
  1. AVONEX [Suspect]
     Indication: MULTIPLE SCLEROSIS
     Dosage: 30 UG;QW;IM
     Route: 030
     Dates: start: 20050831, end: 20070101
  2. COSOPT [Concomitant]
  3. PLAVIX [Concomitant]
  4. INDOMETHACIN [Concomitant]
  5. LOTREL [Concomitant]
  6. XALATAN [Concomitant]
  7. PRED FORTE [Concomitant]
  8. ZOCOR [Concomitant]
  9. METOPROLOL SUCCINATE [Concomitant]
  10. PAXIL [Concomitant]

REACTIONS (2)
  - MYOCARDIAL INFARCTION [None]
  - RESUSCITATION [None]
